FAERS Safety Report 19075734 (Version 1)
Quarter: 2021Q1

REPORT INFORMATION
  Report Type: Spontaneous
  Country: US (occurrence: US)
  Receive Date: 20210331
  Receipt Date: 20210331
  Transmission Date: 20210420
  Serious: Yes (Other)
  Sender: FDA-Public Use
  Company Number: US-ABBVIE-21K-163-3832805-00

PATIENT
  Age: 50 Year
  Sex: Female

DRUGS (5)
  1. IBRANCE [Suspect]
     Active Substance: PALBOCICLIB
     Indication: PRODUCT USED FOR UNKNOWN INDICATION
     Route: 065
  2. IBRANCE [Suspect]
     Active Substance: PALBOCICLIB
     Route: 065
  3. COVID?19 VACCINE [Concomitant]
     Route: 030
  4. LUPRON [Suspect]
     Active Substance: LEUPROLIDE ACETATE
     Indication: PRODUCT USED FOR UNKNOWN INDICATION
     Route: 065
  5. COVID?19 VACCINE [Concomitant]
     Indication: COVID-19 IMMUNISATION
     Route: 030

REACTIONS (3)
  - Artificial menopause [Unknown]
  - Laboratory test abnormal [Unknown]
  - Neoplasm malignant [Unknown]
